FAERS Safety Report 5266942-2 (Version None)
Quarter: 2007Q1

REPORT INFORMATION
  Report Type: 
  Country: None (occurrence: None)
  Receive Date: 20070316
  Receipt Date: 20070305
  Transmission Date: 20070707
  Serious: Yes (Death, Hospitalization)
  Sender: FDA-Public Use
  Company Number: HQWYE876106MAR07

PATIENT
  Sex: Male

DRUGS (7)
  1. PROTONIX [Suspect]
     Route: 048
     Dates: start: 20040701
  2. MS CONTIN [Concomitant]
     Dosage: UNKNOWN
  3. ALLOPURINOL [Concomitant]
     Dosage: UNKNOWN
  4. IMDUR [Concomitant]
     Dosage: UNKNOWN
  5. PREDNISONE [Concomitant]
     Dosage: UNKNOWN
  6. COREG [Concomitant]
     Dosage: UNKNOWN
  7. LASIX [Concomitant]
     Dosage: UNKNOWN

REACTIONS (3)
  - CEREBROVASCULAR ACCIDENT [None]
  - SEPSIS [None]
  - URINARY TRACT INFECTION [None]
